FAERS Safety Report 24108325 (Version 1)
Quarter: 2024Q3

REPORT INFORMATION
  Report Type: Report from Study
  Country: BR (occurrence: None)
  Receive Date: 20240718
  Receipt Date: 20240718
  Transmission Date: 20241016
  Serious: Yes (Other)
  Sender: ASTRAZENECA
  Company Number: 2023A089679

PATIENT
  Age: 18825 Day
  Sex: Female
  Weight: 62 kg

DRUGS (2)
  1. FASENRA [Suspect]
     Active Substance: BENRALIZUMAB
     Indication: Asthma
     Route: 058
     Dates: start: 202103
  2. COVID-19 VACCINE NOS [Suspect]
     Active Substance: COVID-19 VACCINE

REACTIONS (2)
  - Pericardial fibrosis [Not Recovered/Not Resolved]
  - Troponin increased [Unknown]

NARRATIVE: CASE EVENT DATE: 20230331
